FAERS Safety Report 8935407 (Version 1)
Quarter: 2012Q4

REPORT INFORMATION
  Report Type: Spontaneous
  Country: DE (occurrence: None)
  Receive Date: 20121119
  Receipt Date: 20121119
  Transmission Date: 20130627
  Serious: Yes (Life-Threatening, Hospitalization)
  Sender: FDA-Public Use
  Company Number: 2012MA013460

PATIENT
  Age: 17 Year
  Sex: Male

DRUGS (9)
  1. HALOPERIDOL [Suspect]
     Indication: AGITATION
  2. FENTANYL [Suspect]
     Route: 042
  3. NALOXONE [Suspect]
     Route: 040
  4. LEVOMEPROMAZINE [Suspect]
  5. PROPOFOL [Concomitant]
  6. SEVOFLURANE [Concomitant]
  7. ROCURONIUM [Concomitant]
  8. HYDROXYETHYLSTARCH [Concomitant]
  9. CLONIDINE [Concomitant]

REACTIONS (8)
  - Pulmonary oedema [None]
  - Apnoea [None]
  - Accidental overdose [None]
  - Dyskinesia [None]
  - Unresponsive to stimuli [None]
  - Agitation [None]
  - Blood pressure decreased [None]
  - Restlessness [None]
